FAERS Safety Report 12837347 (Version 1)
Quarter: 2016Q4

REPORT INFORMATION
  Report Type: Report from Study
  Country: US (occurrence: US)
  Receive Date: 20161011
  Receipt Date: 20161011
  Transmission Date: 20170207
  Serious: Yes (Other)
  Sender: FDA-Public Use
  Company Number: US-ASTRAZENECA-2016SE48532

PATIENT
  Sex: Female
  Weight: 43.1 kg

DRUGS (2)
  1. LYNPARZA [Suspect]
     Active Substance: OLAPARIB
     Indication: OVARIAN CANCER
     Route: 048
     Dates: start: 20160412, end: 20160930
  2. LYNPARZA [Suspect]
     Active Substance: OLAPARIB
     Indication: MALIGNANT NEOPLASM OF UTERINE ADNEXA
     Route: 048
     Dates: start: 20160412, end: 20160930

REACTIONS (5)
  - Off label use [Unknown]
  - Arthralgia [Recovering/Resolving]
  - Product use issue [Unknown]
  - Malignant neoplasm progression [Unknown]
  - Myalgia [Recovering/Resolving]
